FAERS Safety Report 7494875-X (Version None)
Quarter: 2011Q2

REPORT INFORMATION
  Report Type: 
  Country: None (occurrence: None)
  Receive Date: 20110520
  Receipt Date: 20110504
  Transmission Date: 20111010
  Serious: No
  Sender: FDA-Public Use
  Company Number: US-B.I. PHARMACEUTICALS,INC./RIDGEFIELD-2011-BP-02392BP

PATIENT
  Sex: Male

DRUGS (17)
  1. BYSTOLIC [Concomitant]
     Dates: start: 20100831
  2. FISH OIL [Concomitant]
     Route: 048
     Dates: start: 20100623
  3. MULTI-VITAMIN [Concomitant]
     Route: 048
     Dates: start: 20100928
  4. LISINOPRIL [Concomitant]
     Indication: HYPERTENSION
     Dates: start: 20091127
  5. HYDROCHLOROTHIAZIDE [Concomitant]
     Indication: FLUID RETENTION
  6. MULTI-VITAMIN [Concomitant]
  7. HYDROCHLOROTHIAZIDE [Concomitant]
     Indication: HYPERTENSION
     Dosage: 25 MG
     Dates: start: 20101007
  8. BYSTOLIC [Concomitant]
     Dates: start: 20110114
  9. FISH OIL [Concomitant]
     Route: 048
     Dates: start: 20100928
  10. MULTI-VITAMIN [Concomitant]
     Route: 048
     Dates: start: 20100623
  11. CRESTOR [Concomitant]
     Indication: BLOOD CHOLESTEROL INCREASED
     Dates: start: 20091127
  12. LISINOPRIL [Concomitant]
     Indication: BLOOD PRESSURE
     Route: 048
     Dates: start: 20100623
  13. LISINOPRIL [Concomitant]
     Indication: RENAL DISORDER
     Route: 048
     Dates: start: 20100928
  14. FISH OIL [Concomitant]
  15. BYSTOLIC [Concomitant]
     Indication: HYPERTENSION
     Dates: start: 20100825
  16. PRADAXA [Suspect]
     Indication: ATRIAL FIBRILLATION
     Dosage: 300 MG
     Route: 048
     Dates: start: 20110114
  17. CRESTOR [Concomitant]
     Indication: LOW DENSITY LIPOPROTEIN
     Dates: start: 20100106

REACTIONS (2)
  - FREQUENT BOWEL MOVEMENTS [None]
  - FAECES DISCOLOURED [None]
